FAERS Safety Report 16270923 (Version 2)
Quarter: 2019Q2

REPORT INFORMATION
  Report Type: Spontaneous
  Country: US (occurrence: US)
  Receive Date: 20190503
  Receipt Date: 20190614
  Transmission Date: 20190711
  Serious: No
  Sender: FDA-Public Use
  Company Number: US-JNJFOC-20190422468

PATIENT
  Age: 46 Year
  Sex: Male
  Weight: 78.93 kg

DRUGS (6)
  1. REMERON [Concomitant]
     Active Substance: MIRTAZAPINE
     Dosage: AS NEEDED
     Route: 065
  2. LORAZEPAM. [Concomitant]
     Active Substance: LORAZEPAM
     Dosage: AS NEEDED
     Route: 065
  3. HALDOL DECANOATE [Concomitant]
     Active Substance: HALOPERIDOL DECANOATE
     Route: 065
  4. RISPERDAL CONSTA [Suspect]
     Active Substance: RISPERIDONE
     Indication: SCHIZOPHRENIA
     Route: 030
  5. BENZTROPINE. [Concomitant]
     Active Substance: BENZTROPINE
     Route: 065
  6. NEXIUM [Concomitant]
     Active Substance: ESOMEPRAZOLE MAGNESIUM
     Route: 065

REACTIONS (4)
  - Device connection issue [Unknown]
  - Syringe issue [Unknown]
  - Device leakage [Unknown]
  - Product dose omission [Unknown]

NARRATIVE: CASE EVENT DATE: 20190411
